FAERS Safety Report 8330944 (Version 2)
Quarter: 2013Q1

REPORT INFORMATION
  Report Type: Spontaneous
  Country: US (occurrence: US)
  Receive Date: 20120111
  Receipt Date: 20130228
  Transmission Date: 20140127
  Serious: No
  Sender: FDA-Public Use
  Company Number: US-BRISTOL-MYERS SQUIBB COMPANY-16333395

PATIENT
  Sex: 0

DRUGS (1)
  1. RECOTHROM [Suspect]
     Dosage: LAST DOSE:5JAN12
     Route: 058

REACTIONS (1)
  - Drug administration error [Unknown]
